FAERS Safety Report 14269027 (Version 1)
Quarter: 2017Q4

REPORT INFORMATION
  Report Type: Spontaneous
  Country: GB (occurrence: GB)
  Receive Date: 20171211
  Receipt Date: 20171211
  Transmission Date: 20180321
  Serious: Yes (Disabling)
  Sender: FDA-Public Use
  Company Number: GB-PFIZER INC-2017521844

PATIENT
  Age: 47 Year
  Sex: Male
  Weight: 75 kg

DRUGS (5)
  1. EZETIMIBE. [Concomitant]
     Active Substance: EZETIMIBE
     Dosage: 1 DF, 1X/DAY
     Dates: start: 20170621, end: 20170823
  2. COCODAMOL [Concomitant]
     Active Substance: ACETAMINOPHEN\CODEINE PHOSPHATE
     Dosage: TAKE 1 OR 2 4 TIMES/DAY
     Dates: start: 20170224
  3. PRUCALOPRIDE [Concomitant]
     Active Substance: PRUCALOPRIDE
     Dosage: 1 MG, 1X/DAY
     Dates: start: 20170224
  4. ATORVASTATIN [Suspect]
     Active Substance: ATORVASTATIN
     Dosage: UNK
     Dates: start: 20171018, end: 20171120
  5. FLUOXETINE [Concomitant]
     Active Substance: FLUOXETINE HYDROCHLORIDE
     Dosage: 1 DF, 1X/DAY
     Dates: start: 20170224

REACTIONS (6)
  - Migraine [Recovering/Resolving]
  - Rash [Unknown]
  - Headache [Unknown]
  - Myalgia [Recovering/Resolving]
  - Back pain [Recovering/Resolving]
  - Nightmare [Unknown]

NARRATIVE: CASE EVENT DATE: 20171120
